FAERS Safety Report 18826932 (Version 1)
Quarter: 2021Q1

REPORT INFORMATION
  Report Type: Spontaneous
  Country: US (occurrence: US)
  Receive Date: 20210202
  Receipt Date: 20210202
  Transmission Date: 20210419
  Serious: No
  Sender: FDA-Public Use
  Company Number: US-PERRIGO-20US018735

PATIENT
  Age: 66 Year
  Sex: Male
  Weight: 72.56 kg

DRUGS (1)
  1. ESTRADIOL. [Suspect]
     Active Substance: ESTRADIOL
     Indication: EXPOSURE VIA PARTNER
     Dosage: UNKNOWN, UNKNOWN
     Route: 061
     Dates: start: 202011, end: 202101

REACTIONS (2)
  - Balanoposthitis [Recovering/Resolving]
  - Accidental exposure to product [Unknown]

NARRATIVE: CASE EVENT DATE: 202011
